FAERS Safety Report 15494370 (Version 2)
Quarter: 2018Q4

REPORT INFORMATION
  Report Type: Spontaneous
  Country: FR (occurrence: FR)
  Receive Date: 20181012
  Receipt Date: 20181113
  Transmission Date: 20190205
  Serious: Yes (Hospitalization)
  Sender: FDA-Public Use
  Company Number: FR-TEVA-2018-FR-963909

PATIENT
  Age: 45 Year
  Sex: Male
  Weight: 76 kg

DRUGS (6)
  1. VANCOMYCIN [Suspect]
     Active Substance: VANCOMYCIN
     Indication: OSTEITIS
     Route: 042
     Dates: start: 20120704, end: 20120718
  2. VANCOMYCIN [Suspect]
     Active Substance: VANCOMYCIN
     Route: 030
     Dates: start: 20120718, end: 20120724
  3. BACTRIM [Suspect]
     Active Substance: SULFAMETHOXAZOLE\TRIMETHOPRIM
     Indication: OSTEITIS
     Dosage: 800 MG+160 MG THREE TABLETS DAILY
     Route: 048
     Dates: start: 20120712, end: 20120724
  4. AZTREONAM. [Concomitant]
     Active Substance: AZTREONAM
     Indication: OSTEITIS
     Dates: start: 20120724
  5. LEVOFLOXACIN. [Concomitant]
     Active Substance: LEVOFLOXACIN
     Indication: OSTEITIS
     Dates: start: 20120704, end: 20120712
  6. TARGOCID [Suspect]
     Active Substance: TEICOPLANIN
     Indication: OSTEITIS
     Dosage: 800 MILLIGRAM DAILY;
     Route: 030
     Dates: start: 20120718, end: 20120724

REACTIONS (1)
  - Drug reaction with eosinophilia and systemic symptoms [Recovering/Resolving]

NARRATIVE: CASE EVENT DATE: 20120724
